FAERS Safety Report 7753842-9 (Version None)
Quarter: 2011Q3

REPORT INFORMATION
  Report Type: 
  Country: None (occurrence: None)
  Receive Date: 20110915
  Receipt Date: 20110906
  Transmission Date: 20111222
  Serious: Yes (Hospitalization, Other)
  Sender: FDA-Public Use
  Company Number: US-BAYER-201034830NA

PATIENT
  Age: 33 Year
  Sex: Female
  Weight: 102.49 kg

DRUGS (6)
  1. YASMIN [Suspect]
     Indication: PRODUCT USED FOR UNKNOWN INDICATION
  2. ETODOLAC [Concomitant]
     Dosage: 200 MG, UNK
  3. DROSPIRENONE AND ETHINYL ESTRADIOL [Suspect]
     Indication: UNEVALUABLE EVENT
  4. DROSPIRENONE AND ETHINYL ESTRADIOL [Suspect]
     Indication: PREMENSTRUAL SYNDROME
     Route: 048
     Dates: start: 20060226, end: 20100901
  5. ZOLPIDEM [Concomitant]
     Dosage: 10 MG, UNK
  6. CYMBALTA [Concomitant]
     Dosage: 60 MG, UNK

REACTIONS (3)
  - PAIN [None]
  - CHOLECYSTITIS [None]
  - GALLBLADDER DISORDER [None]
